FAERS Safety Report 11508099 (Version 1)
Quarter: 2015Q3

REPORT INFORMATION
  Report Type: Spontaneous
  Country: US (occurrence: US)
  Receive Date: 20150903
  Receipt Date: 20150903
  Transmission Date: 20151125
  Serious: No
  Sender: FDA-Public Use
  Company Number: US-ELI_LILLY_AND_COMPANY-US200911003202

PATIENT
  Sex: Female

DRUGS (11)
  1. TEMAZEPAM. [Concomitant]
     Active Substance: TEMAZEPAM
     Dosage: 30 MG, UNKNOWN
  2. HUMALOG [Suspect]
     Active Substance: INSULIN LISPRO
     Dosage: 16 MG, 3/D
     Dates: start: 200906
  3. AMLODIPINE BESILATE [Concomitant]
     Active Substance: AMLODIPINE BESYLATE
     Dosage: 10 MG, UNKNOWN
  4. WATER PILLS [Concomitant]
     Active Substance: UNSPECIFIED INGREDIENT
  5. METOPROLOL SUCCINATE. [Concomitant]
     Active Substance: METOPROLOL SUCCINATE
  6. MAGNESIUM [Concomitant]
     Active Substance: MAGNESIUM
     Dosage: 54 MG, UNKNOWN
  7. LORAPAM [Concomitant]
  8. POTASSIUM [Concomitant]
     Active Substance: POTASSIUM
  9. CARISOPRODOL. [Concomitant]
     Active Substance: CARISOPRODOL
     Dosage: 350 MG, UNKNOWN
  10. LANTUS [Concomitant]
     Active Substance: INSULIN GLARGINE
  11. ENDURE [Concomitant]

REACTIONS (1)
  - Visual impairment [Not Recovered/Not Resolved]

NARRATIVE: CASE EVENT DATE: 200906
